FAERS Safety Report 19081171 (Version 1)
Quarter: 2021Q1

REPORT INFORMATION
  Report Type: Spontaneous
  Country: US (occurrence: US)
  Receive Date: 20210331
  Receipt Date: 20210331
  Transmission Date: 20210420
  Serious: Yes (Hospitalization)
  Sender: FDA-Public Use
  Company Number: US-009507513-2103USA008310

PATIENT
  Sex: Female
  Weight: 55.9 kg

DRUGS (24)
  1. ACETAMINOPHEN (+) HYDROCODONE BITARTRATE [Concomitant]
     Active Substance: ACETAMINOPHEN\HYDROCODONE BITARTRATE
  2. TRAZODONE HYDROCHLORIDE. [Concomitant]
     Active Substance: TRAZODONE HYDROCHLORIDE
  3. BENZONATATE. [Concomitant]
     Active Substance: BENZONATATE
  4. ASPIRIN. [Concomitant]
     Active Substance: ASPIRIN
  5. DRONABINOL. [Concomitant]
     Active Substance: DRONABINOL
  6. VITAMIN B (UNSPECIFIED) [Concomitant]
     Active Substance: VITAMIN B
  7. VITAMIN E [Concomitant]
     Active Substance: .ALPHA.-TOCOPHEROL
  8. ELIQUIS [Concomitant]
     Active Substance: APIXABAN
  9. IBUPROFEN. [Concomitant]
     Active Substance: IBUPROFEN
  10. LEVOFLOXACIN. [Concomitant]
     Active Substance: LEVOFLOXACIN
  11. KEYTRUDA [Suspect]
     Active Substance: PEMBROLIZUMAB
     Dosage: 100 MG/4 ML
  12. ASCORBIC ACID. [Concomitant]
     Active Substance: ASCORBIC ACID
  13. LACTULOSE. [Concomitant]
     Active Substance: LACTULOSE
  14. HYDROCORTISONE. [Concomitant]
     Active Substance: HYDROCORTISONE
  15. MEGESTROL ACETATE. [Concomitant]
     Active Substance: MEGESTROL ACETATE
  16. FUROSEMIDE. [Concomitant]
     Active Substance: FUROSEMIDE
  17. ZOLPIDEM TARTRATE. [Concomitant]
     Active Substance: ZOLPIDEM TARTRATE
  18. POTASSIUM CHLORIDE. [Concomitant]
     Active Substance: POTASSIUM CHLORIDE
  19. LENVATINIB MESYLATE [Suspect]
     Active Substance: LENVATINIB MESYLATE
     Indication: ENDOMETRIAL CANCER
     Dosage: 10 MILLIGRAM, QD
     Route: 048
  20. GAS?X [Concomitant]
     Active Substance: DIMETHICONE
  21. IRON (UNSPECIFIED) [Concomitant]
     Active Substance: IRON
  22. ONE?A?DAY WOMENS PRENATAL [Concomitant]
  23. CHOLECALCIFEROL [Concomitant]
     Active Substance: CHOLECALCIFEROL
  24. PRINIVIL [Concomitant]
     Active Substance: LISINOPRIL

REACTIONS (7)
  - Abdominal pain upper [Unknown]
  - Vision blurred [Unknown]
  - COVID-19 [Recovered/Resolved]
  - Eye disorder [Unknown]
  - Abdominal discomfort [Unknown]
  - Insomnia [Unknown]
  - Constipation [Not Recovered/Not Resolved]
